FAERS Safety Report 10579529 (Version 1)
Quarter: 2014Q4

REPORT INFORMATION
  Report Type: Spontaneous
  Country: US (occurrence: US)
  Receive Date: 20141112
  Receipt Date: 20141112
  Transmission Date: 20150529
  Serious: Yes (Other)
  Sender: FDA-Public Use
  Company Number: US-SA-2014SA154889

PATIENT
  Age: 72 Year
  Sex: Male
  Weight: 120.2 kg

DRUGS (5)
  1. CYTOXAN [Suspect]
     Active Substance: CYCLOPHOSPHAMIDE
     Indication: CHRONIC LYMPHOCYTIC LEUKAEMIA
     Dosage: MONTHLY CYCLE DAY 1-2-3
     Route: 042
     Dates: start: 20130924, end: 20140219
  2. FLUDARA [Suspect]
     Active Substance: FLUDARABINE PHOSPHATE
     Indication: CHRONIC LYMPHOCYTIC LEUKAEMIA
     Dosage: FREQUENCY: MONTHLY CYCLE DAY 1-2-3
     Route: 042
     Dates: start: 20130924, end: 20140219
  3. FLUDARA [Suspect]
     Active Substance: FLUDARABINE PHOSPHATE
     Indication: CHRONIC LYMPHOCYTIC LEUKAEMIA
     Route: 042
     Dates: start: 20110502, end: 20111024
  4. RITUXAN [Suspect]
     Active Substance: RITUXIMAB
     Indication: CHRONIC LYMPHOCYTIC LEUKAEMIA
     Route: 042
     Dates: start: 20110502, end: 20111024
  5. RITUXAN [Suspect]
     Active Substance: RITUXIMAB
     Indication: CHRONIC LYMPHOCYTIC LEUKAEMIA
     Dosage: FREQUENCY: DAY1 EACH MONTHLY CYCLE
     Route: 042
     Dates: start: 20130924, end: 20140217

REACTIONS (2)
  - Penile cancer [Unknown]
  - Appendix disorder [Unknown]

NARRATIVE: CASE EVENT DATE: 20110721
